FAERS Safety Report 20845985 (Version 1)
Quarter: 2022Q2

REPORT INFORMATION
  Report Type: Spontaneous
  Country: US (occurrence: US)
  Receive Date: 20220518
  Receipt Date: 20220518
  Transmission Date: 20220721
  Serious: No
  Sender: FDA-Public Use
  Company Number: USA--2021-US-000489

PATIENT
  Age: 76 Year
  Sex: Female

DRUGS (2)
  1. LATANOPROST [Suspect]
     Active Substance: LATANOPROST
     Dates: start: 20210829, end: 20210831
  2. IMITREX [Interacting]
     Active Substance: SUMATRIPTAN SUCCINATE
     Route: 048
     Dates: start: 20210830, end: 20210831

REACTIONS (1)
  - Headache [Recovered/Resolved]

NARRATIVE: CASE EVENT DATE: 20210829
